FAERS Safety Report 8245770 (Version 7)
Quarter: 2013Q2

REPORT INFORMATION
  Report Type: Report from Study
  Country: US (occurrence: US)
  Receive Date: 20111115
  Receipt Date: 20130403
  Transmission Date: 20140414
  Serious: Yes (Disabling, Other)
  Sender: FDA-Public Use
  Company Number: US-PFIZER INC-2011276944

PATIENT
  Age: 48 Year
  Sex: Male

DRUGS (5)
  1. GEODON [Suspect]
     Indication: NERVOUS SYSTEM DISORDER
     Dosage: 80 MG, 2X/DAY
  2. LITHIUM [Suspect]
     Dosage: UNK
  3. DULCOLAX [Concomitant]
     Indication: ABNORMAL FAECES
     Dosage: UNK
  4. FLOMAX [Concomitant]
     Indication: DYSURIA
     Dosage: UNK
  5. TRAZODONE [Concomitant]
     Dosage: 50 MG, UNK

REACTIONS (16)
  - Blindness [Unknown]
  - Bipolar disorder [Unknown]
  - Schizophrenia [Unknown]
  - Wound [Unknown]
  - Loss of consciousness [Unknown]
  - Memory impairment [Unknown]
  - Blindness unilateral [Unknown]
  - Amblyopia [Unknown]
  - Nervous system disorder [Unknown]
  - Tremor [Unknown]
  - Overdose [Unknown]
  - Decreased activity [Unknown]
  - Feeling abnormal [Unknown]
  - Dysuria [Unknown]
  - Constipation [Unknown]
  - Facial bones fracture [Unknown]
